FAERS Safety Report 15272884 (Version 1)
Quarter: 2018Q3

REPORT INFORMATION
  Report Type: Spontaneous
  Country: US (occurrence: US)
  Receive Date: 20180813
  Receipt Date: 20180813
  Transmission Date: 20181010
  Serious: No
  Sender: FDA-Public Use
  Company Number: US-PURDUE-USA-2018-0142778

PATIENT
  Sex: Male

DRUGS (2)
  1. BUTRANS [Suspect]
     Active Substance: BUPRENORPHINE
     Indication: PRODUCT USED FOR UNKNOWN INDICATION
     Dosage: 5 MCG/HR, WEEKLY
     Route: 062
  2. BUTRANS [Suspect]
     Active Substance: BUPRENORPHINE
     Dosage: 5 MCG/HR, WEEKLY
     Route: 062

REACTIONS (6)
  - Application site erythema [Not Recovered/Not Resolved]
  - Application site rash [Not Recovered/Not Resolved]
  - Wrong technique in product usage process [Unknown]
  - Product contamination [Unknown]
  - Inappropriate schedule of drug administration [Unknown]
  - Application site pruritus [Not Recovered/Not Resolved]
